FAERS Safety Report 16480145 (Version 1)
Quarter: 2019Q2

REPORT INFORMATION
  Report Type: Spontaneous
  Country: US (occurrence: US)
  Receive Date: 20190626
  Receipt Date: 20190626
  Transmission Date: 20190711
  Serious: No
  Sender: FDA-Public Use
  Company Number: US-BRISTOL-MYERS SQUIBB COMPANY-BMS-2019-062542

PATIENT
  Sex: Male

DRUGS (1)
  1. SPRYCEL [Suspect]
     Active Substance: DASATINIB
     Indication: THROMBOCYTOPENIA
     Dosage: 1 TAB, DAILY
     Route: 048

REACTIONS (2)
  - Product quality issue [Unknown]
  - Intentional product use issue [Unknown]
